FAERS Safety Report 21848616 (Version 1)
Quarter: 2023Q1

REPORT INFORMATION
  Report Type: Spontaneous
  Country: US (occurrence: None)
  Receive Date: 20230110
  Receipt Date: 20230110
  Transmission Date: 20230418
  Serious: No
  Sender: FDA-Public Use
  Company Number: None

PATIENT
  Sex: Female

DRUGS (1)
  1. DIMETHYL FUMARATE [Suspect]
     Active Substance: DIMETHYL FUMARATE
     Dosage: 240 MG BID ORAL
     Route: 048

REACTIONS (9)
  - Depression [None]
  - Mobility decreased [None]
  - Fall [None]
  - Wound [None]
  - Infection [None]
  - Limb crushing injury [None]
  - Crush injury [None]
  - Limb crushing injury [None]
  - Impaired healing [None]
